FAERS Safety Report 5786049-5 (Version None)
Quarter: 2008Q2

REPORT INFORMATION
  Report Type: 
  Country: None (occurrence: None)
  Receive Date: 20080620
  Receipt Date: 20080620
  Transmission Date: 20081010
  Serious: Yes (Life-Threatening)
  Sender: FDA-Public Use
  Company Number: None

PATIENT
  Age: 73 Year
  Sex: Female
  Weight: 118 kg

DRUGS (9)
  1. WARFARIN SODIUM [Suspect]
     Indication: ATRIAL FIBRILLATION
     Dosage: 5 TO 7.5 MG DAILY PO
     Route: 048
     Dates: start: 20080528, end: 20080602
  2. WARFARIN SODIUM [Suspect]
     Indication: PULMONARY EMBOLISM
     Dosage: 5 TO 7.5 MG DAILY PO
     Route: 048
     Dates: start: 20080528, end: 20080602
  3. OMEPRAZOLE [Concomitant]
  4. GLIPIZIDE [Concomitant]
  5. ATORVASTATIN CALCIUM [Concomitant]
  6. DIGOXIN [Concomitant]
  7. DILTIAZEM HCL [Concomitant]
  8. GUAIFENESIN LA [Concomitant]
  9. LEVOTHYROXINE SODIUM [Concomitant]

REACTIONS (6)
  - CONVULSION [None]
  - ENCEPHALOPATHY [None]
  - HAEMORRHAGE INTRACRANIAL [None]
  - INTERNATIONAL NORMALISED RATIO INCREASED [None]
  - MENTAL STATUS CHANGES [None]
  - RESPIRATORY FAILURE [None]
